FAERS Safety Report 5532214-1 (Version None)
Quarter: 2007Q4

REPORT INFORMATION
  Report Type: 
  Country: None (occurrence: None)
  Receive Date: 20071203
  Receipt Date: 20071017
  Transmission Date: 20080405
  Serious: Yes (Hospitalization, Other)
  Sender: FDA-Public Use
  Company Number: US-ASTRAZENECA-2007UW02027

PATIENT
  Sex: Female

DRUGS (1)
  1. SEROQUEL [Suspect]
     Route: 048
     Dates: start: 20010401, end: 20030201

REACTIONS (20)
  - ARTHROPOD BITE [None]
  - BRONCHITIS [None]
  - CARDIAC FAILURE CONGESTIVE [None]
  - CELLULITIS [None]
  - CHEST PAIN [None]
  - HYPERTENSION [None]
  - JOINT INJURY [None]
  - LUNG DISORDER [None]
  - MENISCUS LESION [None]
  - MENOMETRORRHAGIA [None]
  - OBSTRUCTIVE AIRWAYS DISORDER [None]
  - OEDEMA [None]
  - OSTEOARTHRITIS [None]
  - OSTEOCHONDROSIS [None]
  - RASH [None]
  - SCIATICA [None]
  - SYNCOPE [None]
  - TYPE 1 DIABETES MELLITUS [None]
  - UTERINE POLYP [None]
  - VAGINAL HAEMORRHAGE [None]
